FAERS Safety Report 9763543 (Version 1)
Quarter: 2013Q4

REPORT INFORMATION
  Report Type: Spontaneous
  Country: US (occurrence: US)
  Receive Date: 20131216
  Receipt Date: 20131216
  Transmission Date: 20140711
  Serious: No
  Sender: FDA-Public Use
  Company Number: US-BIOGENIDEC-2013BI109761

PATIENT
  Age: 61 Year
  Sex: Female

DRUGS (24)
  1. TECFIDERA [Suspect]
     Indication: PRODUCT USED FOR UNKNOWN INDICATION
     Route: 048
  2. TECFIDERA [Suspect]
     Indication: PRODUCT USED FOR UNKNOWN INDICATION
     Route: 048
  3. ALFALFA [Concomitant]
  4. VITAMIN B [Concomitant]
  5. MELATONIN [Concomitant]
  6. TURMERIC [Concomitant]
  7. LOPERAMIDE [Concomitant]
  8. PEPTO BISMOL [Concomitant]
  9. LEXAPRO [Concomitant]
  10. NEURONTIN [Concomitant]
  11. HYDROCHLORATHIAZIDE [Concomitant]
  12. NADOLOL [Concomitant]
  13. ZETIA [Concomitant]
  14. TYLENOL WITH CODEINE [Concomitant]
  15. VITAMIN D [Concomitant]
  16. MAGNESIUM [Concomitant]
  17. PRILOSEC [Concomitant]
  18. SUDAFED [Concomitant]
  19. COLLAGEN [Concomitant]
  20. SYNTHROID [Concomitant]
  21. PHENTERMINE [Concomitant]
  22. CLARITIN [Concomitant]
  23. TYLENOL ARTHRITIS [Concomitant]
  24. SKELAXIN [Concomitant]

REACTIONS (9)
  - Muscular weakness [Unknown]
  - Asthenia [Unknown]
  - Fatigue [Unknown]
  - Throat irritation [Unknown]
  - Rash papular [Unknown]
  - Pruritus [Unknown]
  - Skin burning sensation [Unknown]
  - Nausea [Unknown]
  - Abdominal pain upper [Unknown]
